FAERS Safety Report 5015985-2 (Version None)
Quarter: 2006Q2

REPORT INFORMATION
  Report Type: 
  Country: None (occurrence: None)
  Receive Date: 20060414
  Receipt Date: 20060313
  Transmission Date: 20061013
  Serious: No
  Sender: FDA-Public Use
  Company Number: 2006SP001199

PATIENT
  Age: 24 Year
  Sex: Male
  Weight: 66.2252 kg

DRUGS (5)
  1. LUNESTA [Suspect]
     Indication: INSOMNIA
     Dosage: SEE IMAGE
     Route: 048
     Dates: start: 20060101, end: 20060311
  2. LUNESTA [Suspect]
     Indication: INSOMNIA
     Dosage: SEE IMAGE
     Route: 048
     Dates: start: 20060101, end: 20060311
  3. AMBIEN [Concomitant]
  4. FLOVENT [Concomitant]
  5. VITAMINS [Concomitant]

REACTIONS (7)
  - DEREALISATION [None]
  - DISORIENTATION [None]
  - DISTURBANCE IN ATTENTION [None]
  - FEELING ABNORMAL [None]
  - HANGOVER [None]
  - MEMORY IMPAIRMENT [None]
  - SOMNOLENCE [None]
